FAERS Safety Report 8733625 (Version 2)
Quarter: 2012Q4

REPORT INFORMATION
  Report Type: 
  Country: IL (occurrence: IL)
  Receive Date: 20120821
  Receipt Date: 20121029
  Transmission Date: 20130627
  Serious: Yes (Hospitalization, Other)
  Sender: FDA-Public Use
  Company Number: PHHY2012IL069544

PATIENT
  Age: 65 Year
  Sex: Female

DRUGS (3)
  1. SANDOSTATIN LAR [Suspect]
     Indication: CARCINOID TUMOUR
     Dosage: 30 mg, every 28 days
     Dates: start: 20070730
  2. SANDOSTATIN LAR [Suspect]
     Dosage: 30 mg, every 28 days
     Dates: start: 20120708
  3. SANDOSTATIN LAR [Suspect]
     Dosage: 30 mg, every 28 days
     Dates: start: 20120919

REACTIONS (3)
  - Haemoglobin decreased [Unknown]
  - Asthenia [Unknown]
  - General physical health deterioration [Not Recovered/Not Resolved]
